FAERS Safety Report 7004622-3 (Version None)
Quarter: 2010Q3

REPORT INFORMATION
  Report Type: 
  Country: None (occurrence: None)
  Receive Date: 20100921
  Receipt Date: 20100915
  Transmission Date: 20110219
  Serious: Yes (Other)
  Sender: FDA-Public Use
  Company Number: DE-BAYER-201039672GPV

PATIENT
  Sex: Female

DRUGS (1)
  1. BETAFERON [Suspect]

REACTIONS (2)
  - DEPRESSED MOOD [None]
  - NEUROPATHY PERIPHERAL [None]
